FAERS Safety Report 24674677 (Version 1)
Quarter: 2024Q4

REPORT INFORMATION
  Report Type: Report from Study
  Country: US (occurrence: US)
  Receive Date: 20241128
  Receipt Date: 20241128
  Transmission Date: 20250114
  Serious: Yes (Hospitalization)
  Sender: ABBVIE
  Company Number: US-ABBVIE-6021606

PATIENT
  Age: 54 Year
  Sex: Female

DRUGS (1)
  1. HUMIRA [Suspect]
     Active Substance: ADALIMUMAB
     Indication: Rheumatoid arthritis
     Dosage: LAST ADMIN DATE NOV 2024
     Route: 058
     Dates: start: 20241107

REACTIONS (2)
  - Lymphoedema [Unknown]
  - Cellulitis [Unknown]

NARRATIVE: CASE EVENT DATE: 20241115
